FAERS Safety Report 9263446 (Version 1)
Quarter: 2013Q1

REPORT INFORMATION
  Report Type: Spontaneous
  Country: US (occurrence: None)
  Receive Date: 20121212
  Receipt Date: 20121212
  Transmission Date: 20140127
  Serious: No
  Sender: FDA-Public Use
  Company Number: 12010USA014377

PATIENT
  Age: 48 Year
  Sex: Female

DRUGS (3)
  1. REBETOL [Suspect]
     Indication: HEPATITIS C
     Route: 048
     Dates: start: 20121015
  2. VICTRELIS [Suspect]
     Indication: HEPATITIS C
     Route: 048
  3. PEGASYS [Concomitant]

REACTIONS (8)
  - Nasal dryness [None]
  - Dysgeusia [None]
  - Malaise [None]
  - Headache [None]
  - Lip dry [None]
  - Lip pain [None]
  - Cystitis [None]
  - Nausea [None]
